FAERS Safety Report 4291514-6 (Version None)
Quarter: 2004Q1

REPORT INFORMATION
  Report Type: 
  Country: None (occurrence: None)
  Receive Date: 20040126
  Receipt Date: 20030915
  Transmission Date: 20041129
  Serious: No
  Sender: FDA-Public Use
  Company Number: USA030947321

PATIENT
  Age: 61 Year
  Sex: Female

DRUGS (5)
  1. FORTEO [Suspect]
     Dates: start: 20030912
  2. ULTRAM (TRMADOL HYDROCHLORIDE) [Concomitant]
  3. NEURONTIN [Concomitant]
  4. RESTORIL [Concomitant]
  5. VALIUM [Concomitant]

REACTIONS (4)
  - INJECTION SITE HAEMORRHAGE [None]
  - INJECTION SITE PAIN [None]
  - INJECTION SITE RASH [None]
  - RESTLESS LEGS SYNDROME [None]
